FAERS Safety Report 15848744 (Version 1)
Quarter: 2019Q1

REPORT INFORMATION
  Report Type: Spontaneous
  Country: US (occurrence: US)
  Receive Date: 20190121
  Receipt Date: 20190121
  Transmission Date: 20190417
  Serious: No
  Sender: FDA-Public Use
  Company Number: US-US WORLDMEDS, LLC-USW201810-001600

PATIENT
  Sex: Female
  Weight: 56.24 kg

DRUGS (7)
  1. RYTARY [Concomitant]
     Active Substance: CARBIDOPA\LEVODOPA
     Dosage: 51.25/245 MG
  2. XADAGO [Suspect]
     Active Substance: SAFINAMIDE MESYLATE
     Route: 048
     Dates: start: 20181012
  3. TRIHEXYPHENIDYL [Suspect]
     Active Substance: TRIHEXYPHENIDYL
     Indication: PRODUCT USED FOR UNKNOWN INDICATION
  4. GOCOVRI [Concomitant]
     Active Substance: AMANTADINE
  5. XADAGO [Suspect]
     Active Substance: SAFINAMIDE MESYLATE
     Indication: PARKINSON^S DISEASE
     Dates: start: 20180918
  6. CARBIDOPA/LEVODOPA [Concomitant]
     Active Substance: CARBIDOPA\LEVODOPA
     Dosage: 325/250 MG Q.I.D
  7. XADAGO [Suspect]
     Active Substance: SAFINAMIDE MESYLATE
     Route: 048
     Dates: start: 20181008

REACTIONS (10)
  - Blood pressure increased [Unknown]
  - Weight decreased [Unknown]
  - Dystonia [Unknown]
  - Malaise [Unknown]
  - Drug interaction [Unknown]
  - Condition aggravated [Unknown]
  - Heart rate increased [Unknown]
  - Feeling abnormal [Unknown]
  - Dysstasia [Unknown]
  - Gait disturbance [Unknown]
